FAERS Safety Report 4865019-5 (Version None)
Quarter: 2005Q4

REPORT INFORMATION
  Report Type: 
  Country: None (occurrence: None)
  Receive Date: 20051223
  Receipt Date: 20051107
  Transmission Date: 20060501
  Serious: Yes (Hospitalization, Other)
  Sender: FDA-Public Use
  Company Number: PHEH2005US12254

PATIENT
  Age: 68 Year
  Sex: Female

DRUGS (6)
  1. AREDIA [Suspect]
     Indication: OSTEOPOROSIS
     Dosage: 90 MG, QMO
     Dates: start: 20021212, end: 20040610
  2. FEMARA [Concomitant]
     Indication: BREAST CANCER
     Dates: start: 20040319
  3. EFFEXOR [Concomitant]
     Indication: HOT FLUSH
  4. SYNTHROID [Concomitant]
  5. CELEBREX [Concomitant]
  6. CYTOMEL [Concomitant]

REACTIONS (15)
  - ANGIONEUROTIC OEDEMA [None]
  - BONE DEBRIDEMENT [None]
  - BONE DISORDER [None]
  - DEEP VEIN THROMBOSIS [None]
  - ENDODONTIC PROCEDURE [None]
  - GINGIVAL SWELLING [None]
  - GINGIVAL ULCERATION [None]
  - GINGIVITIS [None]
  - OEDEMA MOUTH [None]
  - ORAL PAIN [None]
  - OSTEONECROSIS [None]
  - PERIODONTITIS [None]
  - SOFT TISSUE INFECTION [None]
  - SWOLLEN TONGUE [None]
  - TOOTH EXTRACTION [None]
